FAERS Safety Report 19971558 (Version 1)
Quarter: 2021Q4

REPORT INFORMATION
  Report Type: Spontaneous
  Country: FR (occurrence: FR)
  Receive Date: 20211019
  Receipt Date: 20211019
  Transmission Date: 20220303
  Serious: Yes (Hospitalization, Congenital Anomaly, Other)
  Sender: FDA-Public Use
  Company Number: FR-ABBVIE-21K-056-4119233-00

PATIENT
  Age: 18 Year
  Sex: Male

DRUGS (2)
  1. VALPROATE SODIUM [Suspect]
     Active Substance: VALPROATE SODIUM
     Indication: Maternal exposure timing unspecified
     Route: 064
  2. ORTENAL [Concomitant]
     Active Substance: AMPHETAMINE SULFATE\PHENOBARBITAL
     Indication: Product used for unknown indication

REACTIONS (62)
  - Pulmonary valve stenosis [Unknown]
  - Heart disease congenital [Unknown]
  - Congenital hand malformation [Unknown]
  - Congenital musculoskeletal anomaly [Unknown]
  - Developmental hip dysplasia [Unknown]
  - Pulmonary valve incompetence [Unknown]
  - Autism spectrum disorder [Unknown]
  - Fallot^s tetralogy [Unknown]
  - Ectopic ureter [Unknown]
  - Limb malformation [Unknown]
  - Communication disorder [Unknown]
  - Dysmorphism [Unknown]
  - Learning disorder [Unknown]
  - Developmental delay [Unknown]
  - Psychomotor skills impaired [Unknown]
  - Disturbance in attention [Unknown]
  - Social anxiety disorder [Unknown]
  - Aplasia [Unknown]
  - Nipple disorder [Unknown]
  - Mental disorder [Unknown]
  - School refusal [Unknown]
  - Motor dysfunction [Unknown]
  - Carpus curvus [Unknown]
  - Behaviour disorder [Unknown]
  - Mutism [Unknown]
  - Motor dysfunction [Unknown]
  - Sleep disorder [Unknown]
  - Somatic symptom disorder [Unknown]
  - Renal malposition [Unknown]
  - Inguinal hernia [Unknown]
  - Educational problem [Unknown]
  - Disorientation [Unknown]
  - Sleep disorder [Unknown]
  - Depression [Unknown]
  - Mutism [Unknown]
  - Spine malformation [Unknown]
  - Right ventricular dilatation [Unknown]
  - Hypertelorism [Unknown]
  - Scoliosis [Unknown]
  - Asthenia [Unknown]
  - Wrist deformity [Unknown]
  - Urinary tract disorder [Unknown]
  - Gastrooesophageal reflux disease [Unknown]
  - Joint dislocation [Unknown]
  - Haematuria [Unknown]
  - Abdominal mass [Unknown]
  - Ear infection [Unknown]
  - Ear infection [Unknown]
  - Rhinitis [Unknown]
  - Conjunctivitis [Unknown]
  - Pharyngitis [Unknown]
  - Panic disorder [Unknown]
  - Bladder mass [Unknown]
  - Spinal fusion surgery [Unknown]
  - Neck pain [Unknown]
  - Anxiety [Unknown]
  - Asthenia [Unknown]
  - Pain in extremity [Unknown]
  - Abdominal pain upper [Unknown]
  - Vomiting [Unknown]
  - Testicular disorder [Unknown]
  - Foetal exposure during pregnancy [Unknown]

NARRATIVE: CASE EVENT DATE: 20080430
